FAERS Safety Report 6919074-9 (Version None)
Quarter: 2010Q3

REPORT INFORMATION
  Report Type: 
  Country: None (occurrence: None)
  Receive Date: 20100811
  Receipt Date: 20100729
  Transmission Date: 20110219
  Serious: Yes (Other)
  Sender: FDA-Public Use
  Company Number: PHHY2010NL50306

PATIENT

DRUGS (1)
  1. AFINITOR [Suspect]

REACTIONS (1)
  - PLEURAL DISORDER [None]
